FAERS Safety Report 5246194-X (Version None)
Quarter: 2007Q1

REPORT INFORMATION
  Report Type: 
  Country: None (occurrence: None)
  Receive Date: 20070221
  Receipt Date: 20061124
  Transmission Date: 20070707
  Serious: Yes (Hospitalization)
  Sender: FDA-Public Use
  Company Number: 2006EU003150

PATIENT
  Age: 18 Year
  Sex: Male

DRUGS (1)
  1. PROTOPIC [Suspect]
     Indication: DERMATITIS ATOPIC
     Dosage: 0.1%, D, TOPICAL
     Route: 061
     Dates: start: 20060101

REACTIONS (1)
  - KAPOSI'S VARICELLIFORM ERUPTION [None]
